FAERS Safety Report 26155089 (Version 1)
Quarter: 2025Q4

REPORT INFORMATION
  Report Type: Spontaneous
  Country: EU (occurrence: None)
  Receive Date: 20251215
  Receipt Date: 20251215
  Transmission Date: 20260119
  Serious: Yes (Other)
  Sender: UCB
  Company Number: None

PATIENT
  Age: 55 Year

DRUGS (8)
  1. BIMZELX [Suspect]
     Active Substance: BIMEKIZUMAB-BKZX
     Indication: Ankylosing spondylitis
     Dosage: THE PATIENT PAUSED THE TREATMENT TEMPORARILY IN AUGUST FOR EIGHT WEEKS.
  2. BIMZELX [Suspect]
     Active Substance: BIMEKIZUMAB-BKZX
     Dosage: 160 MILLIGRAM, EV 4 WEEKS
  3. Metotreksat / Metex inj, oppl 25 mg/penn [Concomitant]
     Indication: Rheumatic disorder
     Dosage: 1 PEN EVERY WEEK. CONTINUED USE OF MEDICINAL PRODUCT
  4. Etorikoksib / Arcoxia tab 90 mg [Concomitant]
     Indication: Arthralgia
     Dosage: USE WHEN NEEDED. CONTINUED USE OF MEDICINAL PRODUCT
     Route: 061
  5. Folsyre / Folsyre Orifarm tab 1 mg [Concomitant]
     Indication: Product used for unknown indication
     Dosage: CONTINUED USE OF MEDICINAL PRODUCT
     Route: 061
  6. Rosuvastatin / Rosuvastatin Sandoz tab 5 mg [Concomitant]
     Indication: Product used for unknown indication
     Dosage: CONTINUED USE OF MEDICINAL PRODUCT
     Route: 061
  7. Alimemazin / Alimemazin Orifarm dr?per, oppl 40 mg/ml [Concomitant]
     Indication: Product used for unknown indication
     Dosage: CONTINUED USE OF MEDICINAL PRODUCT
     Route: 061
  8. Paracetamol / Paracet tab 1 g [Concomitant]
     Indication: Product used for unknown indication
     Dosage: CONTINUED USE OF MEDICINAL PRODUCT
     Route: 061

REACTIONS (8)
  - Erythema [Recovering/Resolving]
  - Rash pruritic [Recovering/Resolving]
  - Rash [Recovering/Resolving]
  - Eczema [Recovering/Resolving]
  - Rash [Recovering/Resolving]
  - Skin lesion [Recovering/Resolving]
  - Peripheral swelling [Recovering/Resolving]
  - Limb injury [Recovering/Resolving]
